FAERS Safety Report 4584464-9 (Version None)
Quarter: 2005Q1

REPORT INFORMATION
  Report Type: 
  Country: None (occurrence: None)
  Receive Date: 20050125
  Receipt Date: 20041108
  Transmission Date: 20050727
  Serious: No
  Sender: FDA-Public Use
  Company Number: USA041183511

PATIENT
  Age: 78 Year
  Sex: Male
  Weight: 86 kg

DRUGS (6)
  1. FORTEO [Suspect]
     Indication: OSTEOPOROSIS
     Dosage: 20 UG/1 DAY
     Dates: start: 20040401
  2. CITRACAL WITH VITAMIN D [Concomitant]
  3. ASPIRIN [Concomitant]
  4. HYZAAR [Concomitant]
  5. ZEBETA [Concomitant]
  6. PRAVACHOL [Concomitant]

REACTIONS (7)
  - ARTHRALGIA [None]
  - BACK PAIN [None]
  - DISORIENTATION [None]
  - DYSKINESIA [None]
  - INSOMNIA [None]
  - MOBILITY DECREASED [None]
  - TENSION [None]
